FAERS Safety Report 19119102 (Version 8)
Quarter: 2021Q3

REPORT INFORMATION
  Report Type: Spontaneous
  Country: US (occurrence: US)
  Receive Date: 20210411
  Receipt Date: 20210928
  Transmission Date: 20211014
  Serious: No
  Sender: FDA-Public Use
  Company Number: US-SA-2021SA115632

PATIENT
  Age: 45 Year
  Sex: Female

DRUGS (1)
  1. FABRAZYME [Suspect]
     Active Substance: AGALSIDASE BETA
     Indication: FABRY^S DISEASE
     Dosage: 85 MG, QOW
     Route: 041
     Dates: start: 20190727, end: 20210809

REACTIONS (8)
  - Blood pressure decreased [Unknown]
  - Intentional dose omission [Unknown]
  - Cardiac disorder [Unknown]
  - COVID-19 [Unknown]
  - Feeling abnormal [Unknown]
  - Heart rate decreased [Unknown]
  - Dizziness [Unknown]
  - Product dose omission issue [Unknown]

NARRATIVE: CASE EVENT DATE: 20210401
